FAERS Safety Report 17754596 (Version 1)
Quarter: 2020Q2

REPORT INFORMATION
  Report Type: Report from Study
  Country: CA (occurrence: CA)
  Receive Date: 20200506
  Receipt Date: 20200506
  Transmission Date: 20200714
  Serious: Yes (Disabling, Other)
  Sender: FDA-Public Use
  Company Number: CA-GILEAD-2020-0463363

PATIENT
  Age: 50 Year
  Sex: Male
  Weight: 75.3 kg

DRUGS (1)
  1. BICTEGRAVIR W/EMTRICITABINE/TENOFOVIR ALAFENAMIDE [Suspect]
     Active Substance: BICTEGRAVIR\EMTRICITABINE\TENOFOVIR ALAFENAMIDE
     Indication: HIV INFECTION
     Dosage: UNK
     Route: 048
     Dates: start: 201910

REACTIONS (5)
  - Paranoia [Not Recovered/Not Resolved]
  - Psychotic disorder [Unknown]
  - Delusion [Not Recovered/Not Resolved]
  - Syphilis [Unknown]
  - Impaired work ability [Unknown]

NARRATIVE: CASE EVENT DATE: 201910
